FAERS Safety Report 25171268 (Version 2)
Quarter: 2025Q2

REPORT INFORMATION
  Report Type: Spontaneous
  Country: FR (occurrence: FR)
  Receive Date: 20250408
  Receipt Date: 20250504
  Transmission Date: 20250716
  Serious: Yes (Other)
  Sender: SANOFI AVENTIS
  Company Number: FR-BIOVITRUM-2025-FR-004643

PATIENT
  Age: 49 Year
  Sex: Male

DRUGS (3)
  1. ELOCTA [Suspect]
     Active Substance: EFMOROCTOCOG ALFA
     Indication: Prophylaxis
     Route: 065
  2. ELOCTA [Suspect]
     Active Substance: EFMOROCTOCOG ALFA
     Indication: Prophylaxis
     Route: 065
  3. EMICIZUMAB [Suspect]
     Active Substance: EMICIZUMAB
     Indication: Product used for unknown indication
     Route: 065

REACTIONS (3)
  - Haemarthrosis [Unknown]
  - Poor venous access [Unknown]
  - Drug ineffective [Unknown]
